FAERS Safety Report 21860402 (Version 10)
Quarter: 2023Q4

REPORT INFORMATION
  Report Type: Report from Study
  Country: PL (occurrence: None)
  Receive Date: 20230113
  Receipt Date: 20231019
  Transmission Date: 20240109
  Serious: Yes (Life-Threatening, Hospitalization, Other)
  Sender: FDA-Public Use
  Company Number: PL-ROCHE-3072746

PATIENT
  Age: 66 Year
  Sex: Female
  Weight: 70 kg

DRUGS (121)
  1. MOSUNETUZUMAB [Suspect]
     Active Substance: MOSUNETUZUMAB
     Indication: Non-Hodgkin^s lymphoma unspecified histology indolent
     Dosage: ON 23/JUN/2022, 18/AUG/2022 MOST RECENT DOSE (30 MG) ADMINISTRATION PRIOR TO AE/SAE
     Route: 042
     Dates: start: 20220405
  2. LENALIDOMIDE [Suspect]
     Active Substance: LENALIDOMIDE
     Indication: Non-Hodgkin^s lymphoma unspecified histology indolent
     Dosage: MOST RECENT DOSE ADMIN ON 07/JUL/2022 AND 01/SEP/2022, 20 MG PRIOR TO AE/SAE
     Route: 048
     Dates: start: 20220525
  3. PLATELETS [Concomitant]
     Active Substance: HUMAN PLATELET, ALLOGENIC
     Indication: Thrombocytopenia
     Route: 042
     Dates: start: 20220405, end: 20220405
  4. PLATELETS [Concomitant]
     Active Substance: HUMAN PLATELET, ALLOGENIC
     Dosage: 1 U
     Route: 042
     Dates: start: 20220410
  5. PLATELETS [Concomitant]
     Active Substance: HUMAN PLATELET, ALLOGENIC
     Dosage: 1 U
     Route: 042
     Dates: start: 20220403
  6. PLATELETS [Concomitant]
     Active Substance: HUMAN PLATELET, ALLOGENIC
     Dosage: 1 U
     Dates: start: 20220812
  7. PLATELETS [Concomitant]
     Active Substance: HUMAN PLATELET, ALLOGENIC
     Dosage: 1 U
     Dates: start: 20220825
  8. PLATELETS [Concomitant]
     Active Substance: HUMAN PLATELET, ALLOGENIC
     Dosage: 1 U
     Dates: start: 20220826
  9. PLATELETS [Concomitant]
     Active Substance: HUMAN PLATELET, ALLOGENIC
     Dosage: 1 U
     Dates: start: 20220902
  10. PLATELETS [Concomitant]
     Active Substance: HUMAN PLATELET, ALLOGENIC
     Dosage: 1 U
     Dates: start: 20220904
  11. PLATELETS [Concomitant]
     Active Substance: HUMAN PLATELET, ALLOGENIC
     Dosage: 1 U
     Dates: start: 20220905
  12. PLATELETS [Concomitant]
     Active Substance: HUMAN PLATELET, ALLOGENIC
     Dosage: 1 U
     Dates: start: 20220907
  13. PLATELETS [Concomitant]
     Active Substance: HUMAN PLATELET, ALLOGENIC
     Dosage: 1 U
     Dates: start: 20220909
  14. PLATELETS [Concomitant]
     Active Substance: HUMAN PLATELET, ALLOGENIC
     Dosage: 1 U
     Dates: start: 20220911
  15. PLATELETS [Concomitant]
     Active Substance: HUMAN PLATELET, ALLOGENIC
     Dosage: 1 U
     Dates: start: 20220912
  16. ZANDELISIB [Concomitant]
     Active Substance: ZANDELISIB
     Indication: Neoplasm malignant
     Dates: start: 20210824, end: 20220309
  17. ALLOPURINOL [Concomitant]
     Active Substance: ALLOPURINOL
     Route: 048
     Dates: start: 20210824, end: 20220707
  18. ALLOPURINOL [Concomitant]
     Active Substance: ALLOPURINOL
     Route: 048
     Dates: start: 20220830, end: 20220902
  19. ALLOPURINOL [Concomitant]
     Active Substance: ALLOPURINOL
     Route: 048
     Dates: start: 20220415, end: 20220707
  20. ALLOPURINOL [Concomitant]
     Active Substance: ALLOPURINOL
     Route: 048
     Dates: start: 20220720, end: 20220728
  21. ALLOPURINOL [Concomitant]
     Active Substance: ALLOPURINOL
     Route: 048
     Dates: start: 20220819, end: 20220824
  22. DEPRATAL [Concomitant]
     Indication: Depression
     Route: 048
     Dates: start: 20211102, end: 20220624
  23. HASCOVIR [Concomitant]
     Route: 048
     Dates: start: 20210824
  24. BISEPTOL [Concomitant]
     Active Substance: SULFAMETHOXAZOLE\TRIMETHOPRIM
     Indication: Infection prophylaxis
     Route: 048
     Dates: start: 20220404
  25. METAMIZOLE [Concomitant]
     Active Substance: METAMIZOLE
     Indication: Pyrexia
     Route: 042
     Dates: start: 20220405, end: 20220405
  26. ACETAMINOPHEN [Concomitant]
     Active Substance: ACETAMINOPHEN
     Indication: Pyrexia
     Route: 042
     Dates: start: 20220405, end: 20220405
  27. ACETAMINOPHEN [Concomitant]
     Active Substance: ACETAMINOPHEN
     Route: 042
     Dates: start: 20220405, end: 20220411
  28. ACETAMINOPHEN [Concomitant]
     Active Substance: ACETAMINOPHEN
     Route: 048
     Dates: start: 20220328, end: 20220403
  29. ACETAMINOPHEN [Concomitant]
     Active Substance: ACETAMINOPHEN
     Route: 042
     Dates: start: 20220623, end: 20220623
  30. ACETAMINOPHEN [Concomitant]
     Active Substance: ACETAMINOPHEN
     Route: 042
     Dates: start: 20220805, end: 20220805
  31. ACETAMINOPHEN [Concomitant]
     Active Substance: ACETAMINOPHEN
     Route: 042
     Dates: start: 20220818, end: 20220818
  32. ACETAMINOPHEN [Concomitant]
     Active Substance: ACETAMINOPHEN
     Route: 042
     Dates: start: 20220905, end: 20220905
  33. DEXAMETHASONE [Concomitant]
     Active Substance: DEXAMETHASONE
     Route: 042
     Dates: start: 20220405, end: 20220405
  34. DEXAMETHASONE [Concomitant]
     Active Substance: DEXAMETHASONE
     Route: 042
     Dates: start: 20220623, end: 20220623
  35. DEXAMETHASONE [Concomitant]
     Active Substance: DEXAMETHASONE
     Route: 042
     Dates: start: 20220818, end: 20220818
  36. CLEMASTINE [Concomitant]
     Active Substance: CLEMASTINE
     Route: 042
     Dates: start: 20220623, end: 20220623
  37. CLEMASTINE [Concomitant]
     Active Substance: CLEMASTINE
     Route: 042
     Dates: start: 20220818, end: 20220818
  38. CLEMASTINE [Concomitant]
     Active Substance: CLEMASTINE
     Route: 042
     Dates: start: 20220905, end: 20220905
  39. FUROSEMIDE [Concomitant]
     Active Substance: FUROSEMIDE
     Route: 042
     Dates: start: 20220404, end: 20220412
  40. FUROSEMIDE [Concomitant]
     Active Substance: FUROSEMIDE
     Route: 042
     Dates: start: 20220906, end: 20220911
  41. HUMAN RED BLOOD CELL [Concomitant]
     Active Substance: HUMAN RED BLOOD CELL
     Dosage: 2 U
     Dates: start: 20220409
  42. HUMAN RED BLOOD CELL [Concomitant]
     Active Substance: HUMAN RED BLOOD CELL
     Dosage: 1 U
     Dates: start: 20220428
  43. HUMAN RED BLOOD CELL [Concomitant]
     Active Substance: HUMAN RED BLOOD CELL
     Dosage: 2 U
     Dates: start: 20220819
  44. HUMAN RED BLOOD CELL [Concomitant]
     Active Substance: HUMAN RED BLOOD CELL
     Dosage: 2 U
     Dates: start: 20220402
  45. HUMAN RED BLOOD CELL [Concomitant]
     Active Substance: HUMAN RED BLOOD CELL
     Dosage: 2 U
     Dates: start: 20220818
  46. HUMAN RED BLOOD CELL [Concomitant]
     Active Substance: HUMAN RED BLOOD CELL
     Dosage: 1 U
     Dates: start: 20220709
  47. HUMAN RED BLOOD CELL [Concomitant]
     Active Substance: HUMAN RED BLOOD CELL
     Dosage: 1 U
     Dates: start: 20220730
  48. HUMAN RED BLOOD CELL [Concomitant]
     Active Substance: HUMAN RED BLOOD CELL
     Dosage: 1 U
     Dates: start: 20220804
  49. HUMAN RED BLOOD CELL [Concomitant]
     Active Substance: HUMAN RED BLOOD CELL
     Dosage: 1 U
     Dates: start: 20220805
  50. HUMAN RED BLOOD CELL [Concomitant]
     Active Substance: HUMAN RED BLOOD CELL
     Dosage: 1 U
     Dates: start: 20220816
  51. HUMAN RED BLOOD CELL [Concomitant]
     Active Substance: HUMAN RED BLOOD CELL
     Dosage: 1 U
     Dates: start: 20220731
  52. HUMAN RED BLOOD CELL [Concomitant]
     Active Substance: HUMAN RED BLOOD CELL
     Dosage: 1 U
     Dates: start: 20220826
  53. HUMAN RED BLOOD CELL [Concomitant]
     Active Substance: HUMAN RED BLOOD CELL
     Dosage: 1 U
     Dates: start: 20220827
  54. HUMAN RED BLOOD CELL [Concomitant]
     Active Substance: HUMAN RED BLOOD CELL
     Dosage: 1 U
     Dates: start: 20220909
  55. HUMAN RED BLOOD CELL [Concomitant]
     Active Substance: HUMAN RED BLOOD CELL
     Dosage: 1 U
     Dates: start: 20220903
  56. HUMAN RED BLOOD CELL [Concomitant]
     Active Substance: HUMAN RED BLOOD CELL
     Dosage: 1 U
     Dates: start: 20220905
  57. HUMAN RED BLOOD CELL [Concomitant]
     Active Substance: HUMAN RED BLOOD CELL
     Dosage: 1 U
     Dates: start: 20220908
  58. HUMAN RED BLOOD CELL [Concomitant]
     Active Substance: HUMAN RED BLOOD CELL
     Dosage: 1 U
     Dates: start: 20220912
  59. HUMAN PLASMA [Concomitant]
     Active Substance: HUMAN PLASMA
     Dosage: 1 U
     Dates: start: 20220410
  60. METOPROLOL TARTRATE [Concomitant]
     Active Substance: METOPROLOL TARTRATE
     Indication: Tachycardia
     Route: 048
     Dates: start: 20220421, end: 20220707
  61. METOPROLOL TARTRATE [Concomitant]
     Active Substance: METOPROLOL TARTRATE
     Route: 048
     Dates: start: 20220720, end: 20220729
  62. ENOXAPARIN SODIUM [Concomitant]
     Active Substance: ENOXAPARIN SODIUM
     Indication: Prophylaxis
     Route: 058
     Dates: start: 20220525, end: 20220707
  63. ENOXAPARIN SODIUM [Concomitant]
     Active Substance: ENOXAPARIN SODIUM
     Route: 058
     Dates: start: 20220801, end: 20220808
  64. ENOXAPARIN SODIUM [Concomitant]
     Active Substance: ENOXAPARIN SODIUM
     Route: 058
     Dates: start: 20220708, end: 20220717
  65. ENOXAPARIN SODIUM [Concomitant]
     Active Substance: ENOXAPARIN SODIUM
     Route: 058
     Dates: start: 20220719, end: 20220808
  66. ENOXAPARIN SODIUM [Concomitant]
     Active Substance: ENOXAPARIN SODIUM
     Route: 058
     Dates: start: 20220718, end: 20220718
  67. ENOXAPARIN SODIUM [Concomitant]
     Active Substance: ENOXAPARIN SODIUM
     Route: 058
     Dates: start: 20220720, end: 20220728
  68. ALBUMIN HUMAN [Concomitant]
     Active Substance: ALBUMIN HUMAN
     Indication: Hypoalbuminaemia
     Route: 042
     Dates: start: 20220407, end: 20220411
  69. ALLOPURINOL [Concomitant]
     Active Substance: ALLOPURINOL
     Indication: Prophylaxis
     Route: 042
     Dates: start: 20220404, end: 20220404
  70. ALLOPURINOL [Concomitant]
     Active Substance: ALLOPURINOL
     Route: 048
     Dates: start: 20220408, end: 20220414
  71. ALLOPURINOL [Concomitant]
     Active Substance: ALLOPURINOL
     Route: 048
     Dates: start: 20220407, end: 20220407
  72. ALLOPURINOL [Concomitant]
     Active Substance: ALLOPURINOL
     Route: 048
     Dates: start: 20220405, end: 20220405
  73. ALLOPURINOL [Concomitant]
     Active Substance: ALLOPURINOL
     Route: 048
     Dates: start: 20220826, end: 20220829
  74. ALLOPURINOL [Concomitant]
     Active Substance: ALLOPURINOL
     Route: 048
     Dates: start: 20220903, end: 20220912
  75. POTASSIUM CHLORIDE [Concomitant]
     Active Substance: POTASSIUM CHLORIDE
     Route: 048
     Dates: start: 20220405, end: 20220414
  76. POTASSIUM CHLORIDE [Concomitant]
     Active Substance: POTASSIUM CHLORIDE
     Route: 048
     Dates: start: 20220903, end: 20220912
  77. POTASSIUM CHLORIDE [Concomitant]
     Active Substance: POTASSIUM CHLORIDE
     Route: 042
     Dates: start: 20220405, end: 20220405
  78. ESCITAL [Concomitant]
     Indication: Depression
     Route: 048
     Dates: start: 20220624, end: 20220708
  79. ESCITAL [Concomitant]
     Route: 048
     Dates: start: 20220720, end: 20220729
  80. ESCITAL [Concomitant]
     Route: 048
     Dates: start: 20220819, end: 20220825
  81. ESCITAL [Concomitant]
     Route: 048
     Dates: start: 20220830, end: 20220902
  82. CLEMASTINE FUMARATE [Concomitant]
     Active Substance: CLEMASTINE FUMARATE
     Route: 042
     Dates: start: 20220405, end: 20220405
  83. CLEMASTINE FUMARATE [Concomitant]
     Active Substance: CLEMASTINE FUMARATE
     Route: 042
     Dates: start: 20220805, end: 20220805
  84. MOZARIN [Concomitant]
     Indication: Depression
     Route: 048
     Dates: start: 20220730, end: 20220817
  85. MOZARIN [Concomitant]
     Route: 048
     Dates: start: 20220709, end: 20220719
  86. MOZARIN [Concomitant]
     Route: 048
     Dates: start: 20220819, end: 20220819
  87. MOZARIN [Concomitant]
     Route: 048
     Dates: start: 20220826, end: 20220829
  88. MOZARIN [Concomitant]
     Route: 048
     Dates: start: 20220903, end: 20220907
  89. MOZARIN [Concomitant]
     Route: 048
     Dates: start: 20220908, end: 20220912
  90. NYSTATYNA [Concomitant]
     Route: 061
     Dates: start: 20220802, end: 20220818
  91. NYSTATYNA [Concomitant]
     Route: 061
     Dates: start: 20220818, end: 20220819
  92. HYDROCORTISONE SODIUM SUCCINATE [Concomitant]
     Active Substance: HYDROCORTISONE SODIUM SUCCINATE
     Route: 042
     Dates: start: 20220805, end: 20220805
  93. HYDROCORTISONE SODIUM SUCCINATE [Concomitant]
     Active Substance: HYDROCORTISONE SODIUM SUCCINATE
     Route: 042
     Dates: start: 20220905, end: 20220911
  94. HYQVIA [Concomitant]
     Active Substance: HUMAN IMMUNOGLOBULIN G\HYALURONIDASE (HUMAN RECOMBINANT)
     Indication: Hypogammaglobulinaemia
     Route: 058
     Dates: start: 20220805, end: 20220805
  95. HYDROXYZINE HYDROCHLORIDE [Concomitant]
     Active Substance: HYDROXYZINE HYDROCHLORIDE
     Route: 048
     Dates: start: 20220814, end: 20220817
  96. LOPERAMIDE [Concomitant]
     Active Substance: LOPERAMIDE
     Route: 048
     Dates: start: 20220815, end: 20220815
  97. LOPERAMIDE [Concomitant]
     Active Substance: LOPERAMIDE
     Route: 048
     Dates: start: 20220804, end: 20220804
  98. LOPERAMIDE [Concomitant]
     Active Substance: LOPERAMIDE
     Route: 048
     Dates: start: 20220818, end: 20220818
  99. LOPERAMIDE [Concomitant]
     Active Substance: LOPERAMIDE
     Route: 048
     Dates: start: 20220818, end: 20220818
  100. LOPERAMIDE [Concomitant]
     Active Substance: LOPERAMIDE
     Route: 048
     Dates: start: 20220825, end: 20220825
  101. LOPERAMIDE [Concomitant]
     Active Substance: LOPERAMIDE
     Route: 048
     Dates: start: 20220904, end: 20220904
  102. SOLU-MEDROL [Concomitant]
     Active Substance: METHYLPREDNISOLONE SODIUM SUCCINATE
     Dosage: TREATMENT OF THE UNDERLYING DISEASE(PROPHYLAXIS)
     Route: 042
     Dates: start: 20220816, end: 20220817
  103. AFLEGAN [Concomitant]
     Indication: COVID-19
     Route: 042
     Dates: start: 20220711, end: 20220712
  104. THIOCODIN (POLAND) [Concomitant]
     Indication: COVID-19
     Route: 048
     Dates: start: 20220713, end: 20220718
  105. POTASSIUM CHLORIDE [Concomitant]
     Active Substance: POTASSIUM CHLORIDE
     Route: 048
     Dates: start: 20220714, end: 20220718
  106. POTASSIUM CHLORIDE [Concomitant]
     Active Substance: POTASSIUM CHLORIDE
     Route: 042
     Dates: start: 20220714, end: 20220715
  107. POTASSIUM CHLORIDE [Concomitant]
     Active Substance: POTASSIUM CHLORIDE
     Route: 042
     Dates: start: 20220904, end: 20220905
  108. POTASSIUM CHLORIDE [Concomitant]
     Active Substance: POTASSIUM CHLORIDE
     Route: 042
     Dates: start: 20220905, end: 20220912
  109. PROPRANOLOL [Concomitant]
     Active Substance: PROPRANOLOL HYDROCHLORIDE
     Indication: Tachycardia
     Route: 048
     Dates: start: 20220708, end: 20220719
  110. THIOCODIN (POLAND) [Concomitant]
     Indication: COVID-19
     Route: 048
     Dates: start: 20220729, end: 20220806
  111. VEKLURY [Concomitant]
     Active Substance: REMDESIVIR
     Indication: COVID-19
     Route: 042
     Dates: start: 20220709, end: 20220712
  112. VEKLURY [Concomitant]
     Active Substance: REMDESIVIR
     Route: 042
     Dates: start: 20220708, end: 20220708
  113. ESTAZOLAM [Concomitant]
     Active Substance: ESTAZOLAM
     Indication: Prophylaxis
     Route: 048
     Dates: start: 20220712, end: 20220712
  114. CALCIUM CHLORIDE\MAGNESIUM CHLORIDE\POTASSIUM CHLORIDE\SODIUM ACETATE\ [Concomitant]
     Active Substance: CALCIUM CHLORIDE\MAGNESIUM CHLORIDE\POTASSIUM CHLORIDE\SODIUM ACETATE\SODIUM CHLORIDE\SODIUM CITRATE
     Route: 042
     Dates: start: 20220825, end: 20220825
  115. CALCIUM CHLORIDE\MAGNESIUM CHLORIDE\POTASSIUM CHLORIDE\SODIUM ACETATE\ [Concomitant]
     Active Substance: CALCIUM CHLORIDE\MAGNESIUM CHLORIDE\POTASSIUM CHLORIDE\SODIUM ACETATE\SODIUM CHLORIDE\SODIUM CITRATE
     Route: 042
     Dates: start: 20220826, end: 20220829
  116. CALCIUM CHLORIDE\MAGNESIUM CHLORIDE\POTASSIUM CHLORIDE\SODIUM ACETATE\ [Concomitant]
     Active Substance: CALCIUM CHLORIDE\MAGNESIUM CHLORIDE\POTASSIUM CHLORIDE\SODIUM ACETATE\SODIUM CHLORIDE\SODIUM CITRATE
     Route: 042
     Dates: start: 20220904, end: 20220912
  117. CALCIUM CHLORIDE\MAGNESIUM CHLORIDE\POTASSIUM CHLORIDE\SODIUM ACETATE\ [Concomitant]
     Active Substance: CALCIUM CHLORIDE\MAGNESIUM CHLORIDE\POTASSIUM CHLORIDE\SODIUM ACETATE\SODIUM CHLORIDE\SODIUM CITRATE
     Route: 042
     Dates: start: 20220904, end: 20220904
  118. SODIUM CHLORIDE [Concomitant]
     Active Substance: SODIUM CHLORIDE
     Indication: Hyponatraemia
     Route: 048
     Dates: start: 20220905, end: 20220911
  119. CALCIUM CHLORATUM [Concomitant]
     Route: 042
     Dates: start: 20220906, end: 20220912
  120. METOCLOPRAMIDE [Concomitant]
     Active Substance: METOCLOPRAMIDE
     Route: 048
     Dates: start: 20220907, end: 20220907
  121. FENTANYL [Concomitant]
     Active Substance: FENTANYL
     Dosage: 1 OTHER
     Route: 062
     Dates: start: 20220912, end: 20220913

REACTIONS (5)
  - Bacteraemia [Recovered/Resolved]
  - Neutropenia [Recovered/Resolved]
  - Febrile neutropenia [Recovered/Resolved]
  - Thrombocytopenia [Recovered/Resolved]
  - Thrombocytopenia [Recovered/Resolved with Sequelae]

NARRATIVE: CASE EVENT DATE: 20220406
